FAERS Safety Report 8923179 (Version 3)
Quarter: 2013Q1

REPORT INFORMATION
  Report Type: Spontaneous
  Country: US (occurrence: None)
  Receive Date: 20121115
  Receipt Date: 20130117
  Transmission Date: 20140127
  Serious: Yes (Death)
  Sender: FDA-Public Use
  Company Number: DSA_60821_2012

PATIENT
  Age: 74 Year
  Sex: Female

DRUGS (10)
  1. XENAZINE 25 MG (NOT SPECIFIED) [Suspect]
     Indication: MOVEMENT DISORDER
     Dosage: (DF ORAL)
     Route: 048
     Dates: start: 20120908
  2. XENAZINE 25 MG (NOT SPECIFIED) [Suspect]
     Indication: HYPERKINESIA
     Dosage: (DF ORAL)
     Route: 048
     Dates: start: 20120908
  3. CALCIUM [Concomitant]
  4. FENOFIBRATE [Concomitant]
  5. GLUCOSAMINE [Concomitant]
  6. POLYETHYLENE GLYCOL [Concomitant]
  7. ATORVASTATIN [Concomitant]
  8. VITAMIN D3 [Concomitant]
  9. TYLENOL /00020001/ [Concomitant]
  10. DULCOLAX /00064401/ [Concomitant]

REACTIONS (1)
  - Arrhythmia [None]
